FAERS Safety Report 10527109 (Version 2)
Quarter: 2014Q4

REPORT INFORMATION
  Report Type: Spontaneous
  Country: US (occurrence: US)
  Receive Date: 20141020
  Receipt Date: 20141120
  Transmission Date: 20150528
  Serious: No
  Sender: FDA-Public Use
  Company Number: US-009507513-1410USA007255

PATIENT
  Age: 75 Year
  Sex: Female

DRUGS (9)
  1. GAS-X [Concomitant]
     Active Substance: DIMETHICONE
  2. FOSAMAX [Concomitant]
     Active Substance: ALENDRONATE SODIUM
  3. CALCIUM (UNSPECIFIED) [Concomitant]
     Active Substance: CALCIUM
  4. ASCORBIC ACID (+) VITAMIN B (UNSPECIFIED) [Concomitant]
     Active Substance: VITAMINS
  5. DULERA [Suspect]
     Active Substance: FORMOTEROL FUMARATE DIHYDRATE\MOMETASONE FUROATE
     Indication: ASTHMA
     Dosage: 200 MCG/ 5 MCG PERACTUATION: 1 PUFF, BID MORNING AND EVENING, INHALED BY MOUTH THEN MOUTH RINSED
     Route: 055
     Dates: start: 20130920, end: 20131020
  6. ACIDOPHILUS [Concomitant]
     Active Substance: LACTOBACILLUS ACIDOPHILUS
  7. IMODIUM [Concomitant]
     Active Substance: LOPERAMIDE HYDROCHLORIDE
  8. MAGNESIUM (UNSPECIFIED) [Concomitant]
     Active Substance: MAGNESIUM
  9. OMEGA-3 MARINE TRIGLYCERIDES [Concomitant]
     Active Substance: FISH OIL

REACTIONS (1)
  - Laryngitis [Recovered/Resolved]
